FAERS Safety Report 25918956 (Version 1)
Quarter: 2025Q4

REPORT INFORMATION
  Report Type: Spontaneous
  Country: US (occurrence: None)
  Receive Date: 20251010
  Receipt Date: 20251010
  Transmission Date: 20260118
  Serious: Yes (Death)
  Sender: FDA-CTU
  Company Number: None

PATIENT
  Age: 82 Year
  Sex: Female

DRUGS (1)
  1. TADALAFIL [Suspect]
     Active Substance: TADALAFIL
     Indication: Pulmonary arterial hypertension
     Dosage: FREQUENCY : DAILY;?
     Route: 048
     Dates: start: 20230531, end: 20250930

REACTIONS (7)
  - Upper gastrointestinal haemorrhage [None]
  - Anaemia [None]
  - Gastrointestinal ulcer [None]
  - COVID-19 pneumonia [None]
  - Cardiac failure congestive [None]
  - Pneumonia bacterial [None]
  - Respiratory failure [None]

NARRATIVE: CASE EVENT DATE: 20250930
